FAERS Safety Report 4360871-4 (Version None)
Quarter: 2004Q2

REPORT INFORMATION
  Report Type: 
  Country: None (occurrence: None)
  Receive Date: 20040520
  Receipt Date: 20040416
  Transmission Date: 20050107
  Serious: Yes (Other)
  Sender: FDA-Public Use
  Company Number: US-BRISTOL-MYERS SQUIBB COMPANY-12565495

PATIENT
  Age: 54 Year
  Sex: Female

DRUGS (19)
  1. ERBITUX [Suspect]
     Indication: COLON CANCER METASTATIC
     Dosage: LOADING DOSE: 800MG ON 15MAR04; SUBSEQUENT DOSES: 250MG/M2
     Route: 042
  2. CAMPTOSAR [Concomitant]
  3. FLUOROURACIL [Concomitant]
  4. LEUCOVORIN CALCIUM [Concomitant]
  5. BENADRYL [Concomitant]
     Indication: PREMEDICATION
  6. ATIVAN [Concomitant]
     Indication: PREMEDICATION
  7. ZOFRAN [Concomitant]
     Indication: PREMEDICATION
  8. EPOGEN [Concomitant]
  9. ZOLOFT [Concomitant]
  10. GLUCOTROL [Concomitant]
  11. GLUCOTROL [Concomitant]
  12. DARVOCET-N 100 [Concomitant]
  13. MULTI-VITAMIN [Concomitant]
  14. VITAMIN C [Concomitant]
  15. VITAMIN E [Concomitant]
  16. VITAMIN B6 [Concomitant]
  17. IRON (FERROUS SULFATE) [Concomitant]
  18. POTASSIUM [Concomitant]
  19. MAGNESIUM [Concomitant]

REACTIONS (5)
  - EPISTAXIS [None]
  - GINGIVAL BLEEDING [None]
  - GINGIVITIS [None]
  - POST PROCEDURAL HAEMORRHAGE [None]
  - VAGINAL HAEMORRHAGE [None]
